FAERS Safety Report 8104565-8 (Version None)
Quarter: 2012Q1

REPORT INFORMATION
  Report Type: 
  Country: None (occurrence: None)
  Receive Date: 20120201
  Receipt Date: 20120127
  Transmission Date: 20120608
  Serious: Yes (Hospitalization, Other)
  Sender: FDA-Public Use
  Company Number: US-MERCK-1107USA03272

PATIENT
  Sex: Female

DRUGS (7)
  1. FOSAMAX [Suspect]
     Indication: OSTEOPOROSIS
     Route: 048
     Dates: start: 19960627, end: 20011023
  2. FOSAMAX [Suspect]
     Route: 048
     Dates: start: 20011023, end: 20070101
  3. CHOLECALCIFEROL [Concomitant]
     Route: 065
     Dates: start: 19950101
  4. ASCORBIC ACID [Concomitant]
     Route: 065
     Dates: start: 19950101
  5. MAGNESIUM (UNSPECIFIED) [Concomitant]
     Route: 065
     Dates: start: 19950101
  6. CALCIUM (UNSPECIFIED) [Concomitant]
     Route: 065
  7. PRILOSEC [Concomitant]
     Route: 065
     Dates: start: 19950101, end: 20000101

REACTIONS (7)
  - TOOTH DISORDER [None]
  - BREAST CANCER [None]
  - FRACTURE NONUNION [None]
  - FOOT FRACTURE [None]
  - LOW TURNOVER OSTEOPATHY [None]
  - FEMUR FRACTURE [None]
  - FALL [None]
